FAERS Safety Report 8376557-5 (Version None)
Quarter: 2012Q1

REPORT INFORMATION
  Report Type: 
  Country: None (occurrence: None)
  Receive Date: 20120323
  Receipt Date: 20110228
  Transmission Date: 20120608
  Serious: Yes (Hospitalization)
  Sender: FDA-Public Use
  Company Number: 163-21880-10121687

PATIENT
  Age: 82 Year
  Sex: Female

DRUGS (5)
  1. REVLIMID [Suspect]
     Indication: MULTIPLE MYELOMA
     Dosage: 15 MG, 1 IN 1 D, PO
     Route: 048
     Dates: start: 20080601
  2. PREDNISONE [Concomitant]
  3. LORTAB [Concomitant]
  4. PEPCID [Concomitant]
  5. ATIVAN [Concomitant]

REACTIONS (3)
  - URINARY TRACT INFECTION [None]
  - SEPTIC SHOCK [None]
  - ACUTE MYOCARDIAL INFARCTION [None]
